FAERS Safety Report 8277646-6 (Version None)
Quarter: 2012Q2

REPORT INFORMATION
  Report Type: 
  Country: None (occurrence: None)
  Receive Date: 20120412
  Receipt Date: 20120410
  Transmission Date: 20120825
  Serious: No
  Sender: FDA-Public Use
  Company Number: US-PFIZER INC-2012089614

PATIENT
  Sex: Female
  Weight: 111 kg

DRUGS (2)
  1. NORVASC [Concomitant]
     Indication: HYPERTENSION
     Dosage: 10 MG, DAILY
  2. LIPITOR [Suspect]
     Indication: BLOOD CHOLESTEROL INCREASED
     Dosage: 20 MG, DAILY
     Dates: start: 20090101

REACTIONS (4)
  - INSOMNIA [None]
  - COUGH [None]
  - PRURITUS [None]
  - RASH [None]
